FAERS Safety Report 24341281 (Version 2)
Quarter: 2024Q3

REPORT INFORMATION
  Report Type: Spontaneous
  Country: BR (occurrence: BR)
  Receive Date: 20240919
  Receipt Date: 20240927
  Transmission Date: 20241017
  Serious: Yes (Hospitalization)
  Sender: BOEHRINGER INGELHEIM
  Company Number: BR-Komodo Health-a23aa00000384sjAAA

PATIENT
  Age: 34 Year
  Sex: Female
  Weight: 86 kg

DRUGS (5)
  1. OLODATEROL HYDROCHLORIDE\TIOTROPIUM BROMIDE MONOHYDRATE [Suspect]
     Active Substance: OLODATEROL HYDROCHLORIDE\TIOTROPIUM BROMIDE MONOHYDRATE
     Indication: Asthma
     Dosage: FORM STRENGTH:?2,5 MICROGRAMS+2,5 MICROGRAMS.?2 CONSECUTIVE PUFFS A DAY.
     Dates: start: 20240906
  2. Alenia [Concomitant]
     Indication: Asthma
     Dosage: AEROSOL.?3 TIMES A DAY (1 CAPSULE EACH TIME).
  3. BECLOMETHASONE DIPROPIONATE [Concomitant]
     Active Substance: BECLOMETHASONE DIPROPIONATE
     Indication: Asthma
     Dosage: AEROSOL.?FORM STRENGTH: 250.?2 PUFFS EVERY 12 HOURS.
  4. LEVOCETIRIZINE DIHYDROCHLORIDE\MONTELUKAST SODIUM [Concomitant]
     Active Substance: LEVOCETIRIZINE DIHYDROCHLORIDE\MONTELUKAST SODIUM
     Indication: Asthma
     Dosage: 1 TABLET 1 TIMES A DAY.
     Route: 048
  5. RIVOTRIL [Concomitant]
     Active Substance: CLONAZEPAM
     Indication: Depression
     Dosage: 1 TABLET AT NIGHT.
     Route: 048

REACTIONS (5)
  - Asthmatic crisis [Not Recovered/Not Resolved]
  - Asthma [Not Recovered/Not Resolved]
  - Intentional product use issue [Not Recovered/Not Resolved]
  - Fatigue [Unknown]
  - Malaise [Unknown]

NARRATIVE: CASE EVENT DATE: 20240906
